FAERS Safety Report 10229830 (Version 2)
Quarter: 2014Q3

REPORT INFORMATION
  Report Type: Spontaneous
  Country: US (occurrence: US)
  Receive Date: 20140611
  Receipt Date: 20140801
  Transmission Date: 20150326
  Serious: Yes (Hospitalization, Other)
  Sender: FDA-Public Use
  Company Number: US-INCYTE CORPORATION-2014IN001570

PATIENT
  Age: 79 Year
  Sex: Male
  Weight: 119.27 kg

DRUGS (25)
  1. HYDROXYUREA. [Concomitant]
     Active Substance: HYDROXYUREA
  2. FLUZONE                            /00780601/ [Concomitant]
  3. LUMIGAN [Concomitant]
     Active Substance: BIMATOPROST
     Dosage: ONE DROP BOTH EYES AT BEDTIME
     Route: 047
  4. MSM [Concomitant]
     Dosage: 1000 MG, QD
  5. PROBIOTICS [Concomitant]
     Active Substance: PROBIOTICS NOS
     Dosage: 13 BILLION DAILY
  6. SILICA [Concomitant]
     Active Substance: SILICON DIOXIDE
     Dosage: 500 MG, QD
  7. ALLOPURINOL. [Concomitant]
     Active Substance: ALLOPURINOL
     Dosage: 100 MG
  8. OMEPRAZOLE. [Concomitant]
     Active Substance: OMEPRAZOLE
     Dosage: 20 MG, QD
     Route: 048
  9. VITAMIN C [Concomitant]
     Active Substance: ASCORBIC ACID
     Dosage: 125 MG, QD
  10. XANAX [Concomitant]
     Active Substance: ALPRAZOLAM
     Dosage: 0.25 MG, BID, PRN
     Route: 048
  11. PROCRIT [Concomitant]
     Active Substance: ERYTHROPOIETIN
  12. COQ10                              /00517201/ [Concomitant]
     Dosage: 100 MG, QD
  13. ASPIRIN. [Concomitant]
     Active Substance: ASPIRIN
     Dosage: 325 MG, QD
     Route: 048
  14. LASIX [Concomitant]
     Active Substance: FUROSEMIDE
     Dosage: 60 MG, QD
  15. ALDACTONE [Concomitant]
     Active Substance: SPIRONOLACTONE
     Dosage: 50 MG, QD
  16. JAKAFI [Suspect]
     Active Substance: RUXOLITINIB
     Dosage: 20 MG, BID
     Route: 048
     Dates: start: 20140612
  17. NEURONTIN [Concomitant]
     Active Substance: GABAPENTIN
     Dosage: 200 MG, BID
     Route: 048
  18. METOPROLOL [Concomitant]
     Active Substance: METOPROLOL
     Dosage: 150 MG, QD
     Route: 048
  19. LASIX [Concomitant]
     Active Substance: FUROSEMIDE
     Dosage: 40 MG, QD
     Route: 048
  20. SPIRONOLACTONE. [Concomitant]
     Active Substance: SPIRONOLACTONE
     Dosage: 50 MG, QD
     Route: 048
  21. VITAMIN D3 [Concomitant]
     Active Substance: CHOLECALCIFEROL
     Dosage: 5000 UT, QD
  22. JAKAFI [Suspect]
     Active Substance: RUXOLITINIB
     Indication: MYELOFIBROSIS
     Dosage: 5 MG, BID
     Route: 048
     Dates: start: 20130919, end: 2013
  23. JAKAFI [Suspect]
     Active Substance: RUXOLITINIB
     Dosage: 15 MG, BID
     Route: 048
     Dates: start: 20131212, end: 2014
  24. NEURONTIN [Concomitant]
     Active Substance: GABAPENTIN
     Dosage: 300 MG AT BEDTIME
     Route: 048
  25. MULTIVITAMIN                       /07504101/ [Concomitant]
     Active Substance: VITAMINS
     Dosage: 1 DF, QD

REACTIONS (21)
  - Dysgeusia [Unknown]
  - Cellulitis [Recovered/Resolved]
  - Bronchitis [Unknown]
  - Oedema peripheral [Recovering/Resolving]
  - Fatigue [Unknown]
  - Ecchymosis [Recovered/Resolved]
  - Platelet count decreased [Unknown]
  - Dyspnoea [Unknown]
  - Chills [Recovered/Resolved]
  - Red blood cell count decreased [Unknown]
  - Pyrexia [Recovered/Resolved]
  - Fall [Unknown]
  - Musculoskeletal pain [Unknown]
  - Weight decreased [Unknown]
  - Haematocrit decreased [Unknown]
  - Borrelia test positive [Unknown]
  - Dehydration [Unknown]
  - Arthralgia [Unknown]
  - Skin abrasion [Recovering/Resolving]
  - Blister [Recovered/Resolved]
  - Haemoglobin decreased [Recovering/Resolving]

NARRATIVE: CASE EVENT DATE: 20140528
